FAERS Safety Report 21823478 (Version 1)
Quarter: 2023Q1

REPORT INFORMATION
  Report Type: Report from Study
  Country: US (occurrence: US)
  Receive Date: 20230105
  Receipt Date: 20230105
  Transmission Date: 20230418
  Serious: No
  Sender: FDA-Public Use
  Company Number: US-Ipsen Biopharmaceuticals, Inc.-2022-34817

PATIENT
  Sex: Male

DRUGS (1)
  1. SOMATULINE DEPOT [Suspect]
     Active Substance: LANREOTIDE ACETATE
     Indication: Carcinoid tumour
     Dosage: SOMATULINE DEPOT 120 MG SYRINGE SNS US
     Route: 058
     Dates: start: 202212

REACTIONS (5)
  - Constipation [Unknown]
  - Fall [Unknown]
  - Emergency care [Unknown]
  - Fall [Unknown]
  - Pain [Unknown]
